FAERS Safety Report 10964319 (Version 2)
Quarter: 2015Q2

REPORT INFORMATION
  Report Type: Spontaneous
  Country: US (occurrence: US)
  Receive Date: 20150329
  Receipt Date: 20150524
  Transmission Date: 20150821
  Serious: No
  Sender: FDA-Public Use
  Company Number: US-JNJFOC-20130814660

PATIENT
  Sex: Male

DRUGS (2)
  1. DURAGESIC [Suspect]
     Active Substance: FENTANYL
     Indication: PAIN
     Route: 062
  2. FACET SHOTS (ANALGESICS) [Concomitant]
     Indication: PAIN
     Route: 065

REACTIONS (9)
  - Application site erosion [Unknown]
  - Drug ineffective [Unknown]
  - Product quality issue [Unknown]
  - Rubber sensitivity [Unknown]
  - Application site discolouration [Unknown]
  - Application site exfoliation [Unknown]
  - Scar [Unknown]
  - Dermatitis contact [Unknown]
  - Abnormal behaviour [Unknown]
